FAERS Safety Report 21118368 (Version 1)
Quarter: 2022Q3

REPORT INFORMATION
  Report Type: Spontaneous
  Country: US (occurrence: None)
  Receive Date: 20220721
  Receipt Date: 20220721
  Transmission Date: 20221027
  Serious: No
  Sender: FDA-Public Use
  Company Number: None

PATIENT
  Age: 37 Year
  Sex: Male

DRUGS (1)
  1. DIROXIMEL FUMARATE [Suspect]
     Active Substance: DIROXIMEL FUMARATE
     Indication: Multiple sclerosis
     Dosage: 662 MG BID PO?
     Route: 048
     Dates: start: 20211007, end: 20211226

REACTIONS (5)
  - Drug intolerance [None]
  - Sluggishness [None]
  - Diarrhoea [None]
  - Weight decreased [None]
  - Sedation [None]

NARRATIVE: CASE EVENT DATE: 20220509
